FAERS Safety Report 19113123 (Version 1)
Quarter: 2021Q2

REPORT INFORMATION
  Report Type: Spontaneous
  Country: US (occurrence: US)
  Receive Date: 20210409
  Receipt Date: 20210409
  Transmission Date: 20210717
  Serious: Yes (Other)
  Sender: FDA-Public Use
  Company Number: None

PATIENT
  Age: 12 Year
  Sex: Female
  Weight: 47.7 kg

DRUGS (2)
  1. CLONIDINE 0.1MG [Concomitant]
     Active Substance: CLONIDINE
     Dates: start: 20200520, end: 20210408
  2. METHYLPHENIDATE ER [Suspect]
     Active Substance: METHYLPHENIDATE
     Indication: ATTENTION DEFICIT HYPERACTIVITY DISORDER
     Route: 048
     Dates: start: 20210211, end: 20210311

REACTIONS (5)
  - Educational problem [None]
  - Therapeutic response decreased [None]
  - Irritability [None]
  - Anxiety [None]
  - Product substitution issue [None]

NARRATIVE: CASE EVENT DATE: 20210310
